FAERS Safety Report 10844986 (Version 1)
Quarter: 2015Q1

REPORT INFORMATION
  Report Type: Spontaneous
  Country: KR (occurrence: KR)
  Receive Date: 20150220
  Receipt Date: 20150220
  Transmission Date: 20150721
  Serious: Yes (Death, Hospitalization, Other)
  Sender: FDA-Public Use
  Company Number: PHHY2015KR016885

PATIENT
  Age: 72 Year
  Sex: Female

DRUGS (13)
  1. METHOTREXATE [Suspect]
     Active Substance: METHOTREXATE
     Indication: ANGIOIMMUNOBLASTIC T-CELL LYMPHOMA
     Route: 065
  2. ETOPOSIDE. [Suspect]
     Active Substance: ETOPOSIDE
     Indication: ANGIOIMMUNOBLASTIC T-CELL LYMPHOMA
     Route: 065
  3. DOXORUBICIN [Suspect]
     Active Substance: DOXORUBICIN
     Indication: EPSTEIN-BARR VIRUS INFECTION
     Route: 065
     Dates: start: 200912, end: 201004
  4. PREDNISOLONE. [Suspect]
     Active Substance: PREDNISOLONE
     Indication: DIFFUSE LARGE B-CELL LYMPHOMA
  5. VINCRISTINE [Suspect]
     Active Substance: VINCRISTINE
     Indication: DIFFUSE LARGE B-CELL LYMPHOMA
  6. RITUXIMAB [Suspect]
     Active Substance: RITUXIMAB
     Indication: DIFFUSE LARGE B-CELL LYMPHOMA
  7. VINCRISTINE [Suspect]
     Active Substance: VINCRISTINE
     Indication: EPSTEIN-BARR VIRUS INFECTION
     Route: 065
     Dates: start: 200912, end: 201004
  8. CYCLOPHOSPHAMIDE. [Suspect]
     Active Substance: CYCLOPHOSPHAMIDE
     Indication: EPSTEIN-BARR VIRUS INFECTION
     Route: 065
     Dates: start: 200912, end: 201004
  9. CYCLOPHOSPHAMIDE. [Suspect]
     Active Substance: CYCLOPHOSPHAMIDE
     Indication: DIFFUSE LARGE B-CELL LYMPHOMA
  10. DOXORUBICIN [Suspect]
     Active Substance: DOXORUBICIN
     Indication: DIFFUSE LARGE B-CELL LYMPHOMA
  11. RITUXIMAB [Suspect]
     Active Substance: RITUXIMAB
     Indication: EPSTEIN-BARR VIRUS INFECTION
     Route: 065
     Dates: start: 200912, end: 201004
  12. PREDNISOLONE. [Suspect]
     Active Substance: PREDNISOLONE
     Indication: EPSTEIN-BARR VIRUS INFECTION
     Route: 065
     Dates: start: 200912, end: 201004
  13. IFOSFAMIDE. [Suspect]
     Active Substance: IFOSFAMIDE
     Indication: ANGIOIMMUNOBLASTIC T-CELL LYMPHOMA
     Route: 065

REACTIONS (15)
  - Epstein-Barr virus associated lymphoma [Fatal]
  - Rash maculo-papular [Fatal]
  - Diffuse large B-cell lymphoma [Fatal]
  - Escherichia bacteraemia [Unknown]
  - Retroperitoneal lymphadenopathy [Fatal]
  - Malignant neoplasm progression [Fatal]
  - Pneumonia [Unknown]
  - Febrile neutropenia [Unknown]
  - Lymphadenopathy mediastinal [Fatal]
  - Pneumocystis jirovecii pneumonia [Unknown]
  - Arthralgia [Fatal]
  - Rash [Fatal]
  - Angioimmunoblastic T-cell lymphoma stage III [Fatal]
  - Herpes zoster [Unknown]
  - Lymphadenopathy [Fatal]

NARRATIVE: CASE EVENT DATE: 201012
